FAERS Safety Report 6639700-1 (Version None)
Quarter: 2010Q1

REPORT INFORMATION
  Report Type: 
  Country: None (occurrence: None)
  Receive Date: 20100315
  Receipt Date: 20100301
  Transmission Date: 20100710
  Serious: Yes (Hospitalization)
  Sender: FDA-Public Use
  Company Number: 230386J10BRA

PATIENT
  Age: 45 Year
  Sex: Female

DRUGS (4)
  1. REBIF [Suspect]
     Indication: RELAPSING-REMITTING MULTIPLE SCLEROSIS
     Dosage: 44 MCG, 3 IN 1 WEEKS
     Dates: start: 20090921, end: 20100219
  2. ALDOL [HALDOL] (HALOPERIDOL) [Concomitant]
  3. RIVOTRIL (CLONAZEPAM) [Concomitant]
  4. AMITRIPTYLINE HYDROCHLORIDE [Concomitant]

REACTIONS (6)
  - EMOTIONAL DISTRESS [None]
  - HALLUCINATION [None]
  - LIVER DISORDER [None]
  - SYNCOPE [None]
  - URINARY INCONTINENCE [None]
  - VOMITING [None]
